FAERS Safety Report 4827999-3 (Version None)
Quarter: 2005Q4

REPORT INFORMATION
  Report Type: 
  Country: None (occurrence: None)
  Receive Date: 20051110
  Receipt Date: 20051031
  Transmission Date: 20060501
  Serious: Yes (Other)
  Sender: FDA-Public Use
  Company Number: 2005150942

PATIENT
  Sex: Female
  Weight: 101.6057 kg

DRUGS (6)
  1. NORVASC [Suspect]
     Indication: HYPERTENSION
     Dosage: 5 MG (5 MG, QD INTERAL: EVERY DAY), ORAL
     Route: 048
  2. GLUCOVANCE [Suspect]
     Indication: DIABETES MELLITUS
  3. GLUCOPHAGE [Suspect]
     Indication: DIABETES MELLITUS
  4. ACTOS [Suspect]
     Indication: DIABETES MELLITUS
  5. AVAPRO [Concomitant]
  6. AVANDIA [Concomitant]

REACTIONS (3)
  - DIARRHOEA [None]
  - GASTROOESOPHAGEAL REFLUX DISEASE [None]
  - GLAUCOMA [None]
